FAERS Safety Report 6131729-5 (Version None)
Quarter: 2009Q1

REPORT INFORMATION
  Report Type: 
  Country: None (occurrence: None)
  Receive Date: 20090325
  Receipt Date: 20090323
  Transmission Date: 20090719
  Serious: Yes (Death, Other)
  Sender: FDA-Public Use
  Company Number: PHHY2009MX09871

PATIENT
  Age: 83 Year
  Sex: Male

DRUGS (11)
  1. EXELON [Suspect]
     Indication: DEMENTIA ALZHEIMER'S TYPE
     Dosage: 1 PATCH /DAY
     Route: 062
     Dates: start: 20090101
  2. AMARYL [Concomitant]
     Indication: DIABETES MELLITUS
  3. SELOKEN [Concomitant]
  4. RISPERDAL [Concomitant]
  5. QUETIAPINE FUMARATE [Concomitant]
  6. ALPRAZOLAM [Concomitant]
  7. MELATONIN [Concomitant]
  8. OMEPRAZOLE [Concomitant]
  9. HALDOL [Concomitant]
  10. MELOXICAM [Concomitant]
  11. INSULIN [Concomitant]
     Indication: DIABETES MELLITUS

REACTIONS (3)
  - ASPIRATION [None]
  - DYSPEPSIA [None]
  - VOMITING [None]
